FAERS Safety Report 19711479 (Version 4)
Quarter: 2021Q4

REPORT INFORMATION
  Report Type: Report from Study
  Country: US (occurrence: US)
  Receive Date: 20210816
  Receipt Date: 20211121
  Transmission Date: 20220303
  Serious: Yes (Other)
  Sender: FDA-Public Use
  Company Number: NVSC2021US179528

PATIENT
  Sex: Female

DRUGS (2)
  1. PROMACTA [Suspect]
     Active Substance: ELTROMBOPAG OLAMINE
     Indication: Product used for unknown indication
     Dosage: UNK
     Route: 048
     Dates: start: 20210801
  2. PROMACTA [Suspect]
     Active Substance: ELTROMBOPAG OLAMINE
     Dosage: 75 MG
     Route: 048

REACTIONS (20)
  - Hepatitis [Unknown]
  - Paraesthesia [Unknown]
  - Hypoaesthesia [Unknown]
  - Skin texture abnormal [Unknown]
  - Contusion [Recovered/Resolved]
  - Vein disorder [Unknown]
  - Joint swelling [Unknown]
  - Tinnitus [Unknown]
  - External ear inflammation [Unknown]
  - Drug intolerance [Unknown]
  - Dysuria [Recovered/Resolved]
  - Blood glucose increased [Unknown]
  - Emotional disorder [Unknown]
  - Purpura [Unknown]
  - Dysuria [Unknown]
  - Platelet count increased [Unknown]
  - Pruritus [Unknown]
  - Headache [Unknown]
  - Diarrhoea [Unknown]
  - Arthralgia [Unknown]
